FAERS Safety Report 6457417-3 (Version None)
Quarter: 2009Q4

REPORT INFORMATION
  Report Type: 
  Country: None (occurrence: None)
  Receive Date: 20091125
  Receipt Date: 20091116
  Transmission Date: 20100525
  Serious: Yes (Other)
  Sender: FDA-Public Use
  Company Number: US-JNJFOC-20091105311

PATIENT
  Age: 51 Year
  Sex: Female
  Weight: 83 kg

DRUGS (10)
  1. RISPERIDONE [Suspect]
     Indication: DRUG USE FOR UNKNOWN INDICATION
     Route: 065
  2. REBIF [Suspect]
     Indication: MULTIPLE SCLEROSIS
     Route: 058
  3. RANITIDINE [Concomitant]
     Route: 065
  4. GABAPENTIN [Concomitant]
     Route: 065
  5. ALBUTEROL [Concomitant]
     Route: 065
  6. SIMVASTATIN [Concomitant]
     Route: 065
  7. OXYBUTYNIN CHLORIDE [Concomitant]
     Route: 065
  8. OMEPRAZOLE [Concomitant]
     Route: 065
  9. MAXAIR [Concomitant]
     Route: 065
  10. LORAZEPAM [Concomitant]
     Route: 065

REACTIONS (2)
  - EXERCISE TOLERANCE DECREASED [None]
  - TYPE 2 DIABETES MELLITUS [None]
